FAERS Safety Report 24537955 (Version 1)
Quarter: 2024Q4

REPORT INFORMATION
  Report Type: Spontaneous
  Country: US (occurrence: US)
  Receive Date: 20241023
  Receipt Date: 20241023
  Transmission Date: 20250115
  Serious: No
  Sender: GLENMARK
  Company Number: US-GLENMARK PHARMACEUTICALS-2024GMK090595

PATIENT

DRUGS (2)
  1. ABIRATERONE ACETATE [Suspect]
     Active Substance: ABIRATERONE ACETATE
     Indication: Prostate cancer
     Dosage: 4 DOSAGE FORM (1000 MG DAILY)
     Route: 048
     Dates: start: 202401
  2. SODIUM POLYSTYRENE SULFONATE [Concomitant]
     Active Substance: SODIUM POLYSTYRENE SULFONATE
     Indication: Product used for unknown indication
     Dosage: UNK, 15 MG/60 ML, 240, TWICE A DAY
     Route: 065

REACTIONS (2)
  - Illness [Unknown]
  - Product commingling [Unknown]
